FAERS Safety Report 6781956-9 (Version None)
Quarter: 2010Q2

REPORT INFORMATION
  Report Type: 
  Country: None (occurrence: None)
  Receive Date: 20100618
  Receipt Date: 20100618
  Transmission Date: 20101027
  Serious: Yes (Hospitalization)
  Sender: FDA-Public Use
  Company Number: None

PATIENT
  Age: 68 Year
  Sex: Male

DRUGS (1)
  1. SOTALOL HCL [Suspect]
     Indication: ATRIAL FIBRILLATION
     Dosage: 80 MG BID PO
     Route: 048
     Dates: start: 20100402, end: 20100518

REACTIONS (3)
  - BRADYCARDIA [None]
  - CHEST PAIN [None]
  - DIZZINESS [None]
